FAERS Safety Report 14431840 (Version 1)
Quarter: 2018Q1

REPORT INFORMATION
  Report Type: Spontaneous
  Country: ZA (occurrence: ZA)
  Receive Date: 20180124
  Receipt Date: 20180124
  Transmission Date: 20180509
  Serious: Yes (Death)
  Sender: FDA-Public Use
  Company Number: ZA-MYLANLABS-2018M1004222

PATIENT
  Age: 83 Year
  Sex: Male

DRUGS (7)
  1. PREXUM [Concomitant]
     Active Substance: PERINDOPRIL ERBUMINE
     Indication: HYPERTENSION
     Dosage: 5 MG, UNK
     Route: 048
  2. CLOPIDOGREL [Concomitant]
     Active Substance: CLOPIDOGREL BISULFATE
     Indication: ANTICOAGULANT THERAPY
     Dosage: 75 MG, UNK
  3. LACSON [Concomitant]
     Indication: PRODUCT USED FOR UNKNOWN INDICATION
     Dosage: 3.3 G, UNK
     Route: 048
  4. SERENACE [Concomitant]
     Active Substance: HALOPERIDOL
     Indication: DEPRESSION
     Dosage: 5 MG, UNK
  5. PLENISH-K [Concomitant]
     Active Substance: POTASSIUM CHLORIDE
     Indication: BLOOD POTASSIUM ABNORMAL
     Dosage: 600 MG, UNK
     Route: 048
  6. RISNIA [Concomitant]
     Active Substance: RISPERIDONE
     Indication: DEPRESSION
     Dosage: 1 MG, UNK
  7. MYLAN FUROSEMIDE 40 [Suspect]
     Active Substance: FUROSEMIDE
     Indication: DIURETIC THERAPY
     Dosage: 40 MG, UNK
     Route: 048

REACTIONS (1)
  - Death [Fatal]
